FAERS Safety Report 13911682 (Version 1)
Quarter: 2017Q3

REPORT INFORMATION
  Report Type: Spontaneous
  Country: US (occurrence: US)
  Receive Date: 20170828
  Receipt Date: 20170828
  Transmission Date: 20171127
  Serious: No
  Sender: FDA-Public Use
  Company Number: US-ROCHE-1141919

PATIENT
  Sex: Female
  Weight: 25 kg

DRUGS (3)
  1. GROWTH HORMONE [Concomitant]
     Active Substance: SOMATROPIN
     Route: 065
     Dates: start: 199806
  2. VASOTEC [Concomitant]
     Active Substance: ENALAPRIL MALEATE
     Route: 065
  3. NUTROPIN [Suspect]
     Active Substance: SOMATROPIN
     Indication: TURNER^S SYNDROME
     Route: 058
     Dates: start: 199906

REACTIONS (3)
  - Back pain [Unknown]
  - Scoliosis [Unknown]
  - Hypertension [Unknown]
